FAERS Safety Report 21244282 (Version 1)
Quarter: 2022Q3

REPORT INFORMATION
  Report Type: Spontaneous
  Country: US (occurrence: US)
  Receive Date: 20220823
  Receipt Date: 20220823
  Transmission Date: 20221027
  Serious: Yes (Other)
  Sender: FDA-Public Use
  Company Number: US-ELI_LILLY_AND_COMPANY-US202208006928

PATIENT
  Sex: Male

DRUGS (4)
  1. BASAGLAR [Suspect]
     Active Substance: INSULIN GLARGINE
     Indication: Type 2 diabetes mellitus
     Dosage: UNK UNK, UNKNOWN
     Route: 065
  2. BASAGLAR [Suspect]
     Active Substance: INSULIN GLARGINE
     Indication: Type 2 diabetes mellitus
     Dosage: UNK UNK, UNKNOWN
     Route: 065
  3. BASAGLAR [Suspect]
     Active Substance: INSULIN GLARGINE
     Dosage: 8 U, EACH EVENING (EACH NIGHT AT 7 PM)
     Route: 058
  4. BASAGLAR [Suspect]
     Active Substance: INSULIN GLARGINE
     Dosage: 8 U, EACH EVENING (EACH NIGHT AT 7 PM)
     Route: 058

REACTIONS (3)
  - Renal failure [Unknown]
  - Incorrect dose administered [Unknown]
  - Incorrect product administration duration [Unknown]
